FAERS Safety Report 5255077-0 (Version None)
Quarter: 2007Q1

REPORT INFORMATION
  Report Type: 
  Country: None (occurrence: None)
  Receive Date: 20070228
  Receipt Date: 20070213
  Transmission Date: 20070707
  Serious: No
  Sender: FDA-Public Use
  Company Number: 2006PV024981

PATIENT
  Sex: Male

DRUGS (2)
  1. BYETTA [Suspect]
     Indication: DIABETES MELLITUS NON-INSULIN-DEPENDENT
     Dosage: 10 MCG; UNK; SC
     Route: 058
     Dates: start: 20060401
  2. HUMULIN R [Concomitant]

REACTIONS (5)
  - ANIMAL SCRATCH [None]
  - SERUM SICKNESS [None]
  - URTICARIA GENERALISED [None]
  - VIRAL RASH [None]
  - WEIGHT DECREASED [None]
